FAERS Safety Report 4296294-6 (Version None)
Quarter: 2004Q1

REPORT INFORMATION
  Report Type: 
  Country: None (occurrence: None)
  Receive Date: 20040217
  Receipt Date: 20031008
  Transmission Date: 20041129
  Serious: Yes (Other)
  Sender: FDA-Public Use
  Company Number: US-GLAXOSMITHKLINE-A0429725A

PATIENT
  Age: 46 Year
  Sex: Female

DRUGS (7)
  1. LAMOTRIGINE [Suspect]
     Route: 048
     Dates: end: 20030919
  2. CLOZAPINE [Suspect]
     Route: 048
     Dates: start: 20020901, end: 20030912
  3. PROTONIX [Suspect]
     Route: 065
     Dates: end: 20030926
  4. RISPERDAL [Suspect]
     Route: 065
     Dates: end: 20030919
  5. KLONOPIN [Suspect]
  6. COGENTIN [Concomitant]
     Route: 065
     Dates: end: 20030919
  7. ZOLOFT [Concomitant]
     Route: 065
     Dates: end: 20030923

REACTIONS (2)
  - LEUKOPENIA [None]
  - NEUTROPENIA [None]
